FAERS Safety Report 9436594 (Version 2)
Quarter: 2014Q1

REPORT INFORMATION
  Report Type: Spontaneous
  Country: FR (occurrence: FR)
  Receive Date: 20130802
  Receipt Date: 20140327
  Transmission Date: 20141002
  Serious: Yes (Hospitalization)
  Sender: FDA-Public Use
  Company Number: FR-009507513-1307FRA013978

PATIENT
  Age: 65 Year
  Sex: Female

DRUGS (2)
  1. EZETROL [Suspect]
     Indication: PRODUCT USED FOR UNKNOWN INDICATION
     Dosage: 10 MG, QAM
     Route: 048
     Dates: end: 20130625
  2. EZETROL [Suspect]
     Dosage: UNK
     Route: 048

REACTIONS (1)
  - Mixed liver injury [Recovered/Resolved]
